FAERS Safety Report 21694062 (Version 2)
Quarter: 2024Q2

REPORT INFORMATION
  Report Type: Spontaneous
  Country: US (occurrence: US)
  Receive Date: 20221207
  Receipt Date: 20240408
  Transmission Date: 20240716
  Serious: Yes (Other)
  Sender: FDA-Public Use
  Company Number: US-PFIZER INC-202201349601

PATIENT
  Age: 52 Year
  Sex: Female

DRUGS (7)
  1. XELJANZ XR [Suspect]
     Active Substance: TOFACITINIB CITRATE
     Dosage: 11MG TABLET TAKE BY MOUTH 1 TABLET DAILY
     Route: 048
     Dates: start: 20220822
  2. BUPROPION [Concomitant]
     Active Substance: BUPROPION
  3. CYMBALTA [Concomitant]
     Active Substance: DULOXETINE HYDROCHLORIDE
  4. GABAPENTIN [Concomitant]
     Active Substance: GABAPENTIN
  5. IRON [Concomitant]
     Active Substance: IRON
  6. CLONIXIN LYSINE [Concomitant]
     Active Substance: CLONIXIN LYSINE
  7. VITAMIN D3 [Concomitant]
     Active Substance: CHOLECALCIFEROL

REACTIONS (6)
  - Hip arthroplasty [Not Recovered/Not Resolved]
  - Muscle operation [Not Recovered/Not Resolved]
  - Sinusitis [Not Recovered/Not Resolved]
  - Product dose omission issue [Unknown]
  - Condition aggravated [Unknown]
  - Pain [Recovering/Resolving]

NARRATIVE: CASE EVENT DATE: 20240101
